FAERS Safety Report 21403350 (Version 1)
Quarter: 2022Q4

REPORT INFORMATION
  Report Type: Spontaneous
  Country: RU (occurrence: None)
  Receive Date: 20221003
  Receipt Date: 20221003
  Transmission Date: 20230113
  Serious: Yes (Other)
  Sender: FDA-Public Use
  Company Number: RU-ROCHE-3189511

PATIENT
  Age: 62 Year
  Sex: Female

DRUGS (3)
  1. TRASTUZUMAB [Suspect]
     Active Substance: TRASTUZUMAB
     Indication: Breast cancer metastatic
     Dosage: 8 CYCLES OF THE 1ST LINE TT WERE PERFORMED: (TRASTUZUMAB+PERTUZUMAB).
     Route: 065
  2. PERTUZUMAB [Suspect]
     Active Substance: PERTUZUMAB
     Indication: Breast cancer metastatic
     Dosage: 8 CYCLES OF THE 1ST LINE TT WERE PERFORMED: (TRASTUZUMAB+PERTUZUMAB).
     Route: 042
  3. ADO-TRASTUZUMAB EMTANSINE [Suspect]
     Active Substance: ADO-TRASTUZUMAB EMTANSINE
     Indication: Breast cancer metastatic
     Dosage: 8 CYCLES OF TRASTUZUMAB EMTANSINE WERE PERFORMED. ON 27/SEP/2022, A 12 COURSE OF 2 LINE TT WAS PERFO
     Route: 042

REACTIONS (1)
  - Disease progression [Unknown]
